FAERS Safety Report 14939438 (Version 26)
Quarter: 2020Q1

REPORT INFORMATION
  Report Type: Spontaneous
  Country: CA (occurrence: CA)
  Receive Date: 20180525
  Receipt Date: 20200320
  Transmission Date: 20200409
  Serious: Yes (Hospitalization, Other)
  Sender: FDA-Public Use
  Company Number: CA-CELLTRION INC.-2018CA020016

PATIENT

DRUGS (65)
  1. INFLECTRA [Suspect]
     Active Substance: INFLIXIMAB-DYYB
     Dosage: 300 MG, EVERY 6 WEEKS
     Route: 042
     Dates: start: 20180621
  2. INFLECTRA [Suspect]
     Active Substance: INFLIXIMAB-DYYB
     Dosage: 500 MG (10 MG/KG), EVERY 6 WEEKS
     Route: 042
     Dates: start: 20190111
  3. INFLECTRA [Suspect]
     Active Substance: INFLIXIMAB-DYYB
     Dosage: 500 MG, EVERY 4  WEEKS
     Route: 042
     Dates: start: 20190923
  4. INFLECTRA [Suspect]
     Active Substance: INFLIXIMAB-DYYB
     Dosage: 500 MG, EVERY 4  WEEKS
     Route: 042
     Dates: start: 20191022
  5. INFLECTRA [Suspect]
     Active Substance: INFLIXIMAB-DYYB
     Dosage: 600 MG, EVERY 4  WEEKS
     Route: 042
     Dates: start: 20200212
  6. ASCORBIC ACID. [Concomitant]
     Active Substance: ASCORBIC ACID
     Dosage: UNK
     Route: 065
  7. ZOPICLONE [Concomitant]
     Active Substance: ZOPICLONE
     Dosage: UNK
     Route: 065
  8. SUMATRIPTAN SUCCINATE. [Concomitant]
     Active Substance: SUMATRIPTAN SUCCINATE
     Dosage: UNK
  9. LOMOTIL [Concomitant]
     Active Substance: ATROPINE SULFATE\DIPHENOXYLATE HYDROCHLORIDE
     Dosage: UNK
  10. ETIDRONATE DISODIUM + CALCIUM ACT-ETIDROCAL COMBO KIT [Concomitant]
     Dosage: UNK
  11. INFLECTRA [Suspect]
     Active Substance: INFLIXIMAB-DYYB
     Dosage: 300 MG, EVERY 6 WEEKS
     Route: 042
     Dates: start: 20180808
  12. INFLECTRA [Suspect]
     Active Substance: INFLIXIMAB-DYYB
     Dosage: 500 MG (10 MG/KG), EVERY 6 WEEKS
     Route: 042
     Dates: start: 20190111
  13. INFLECTRA [Suspect]
     Active Substance: INFLIXIMAB-DYYB
     Dosage: 500 MG (10 MG/KG), EVERY 6 WEEKS
     Route: 042
     Dates: start: 20190220
  14. INFLECTRA [Suspect]
     Active Substance: INFLIXIMAB-DYYB
     Dosage: 500 MG (10 MG/KG), EVERY 6 WEEKS
     Route: 042
     Dates: start: 20190408
  15. INFLECTRA [Suspect]
     Active Substance: INFLIXIMAB-DYYB
     Dosage: 600 MG, EVERY 4  WEEKS
     Route: 042
     Dates: start: 20200120
  16. ACETAMINOPHEN. [Concomitant]
     Active Substance: ACETAMINOPHEN
     Dosage: UNK
     Route: 065
  17. FLUOXETINE HCL [Concomitant]
     Active Substance: FLUOXETINE HYDROCHLORIDE
     Dosage: UNK
     Route: 065
  18. BACLOFEN. [Concomitant]
     Active Substance: BACLOFEN
     Dosage: UNK
  19. OXYCODONE HYDROCHLORIDE. [Concomitant]
     Active Substance: OXYCODONE HYDROCHLORIDE
     Dosage: UNK
  20. DIPHENHYDRAMINE. [Concomitant]
     Active Substance: DIPHENHYDRAMINE
     Dosage: UNK
     Dates: start: 20181105
  21. INFLECTRA [Suspect]
     Active Substance: INFLIXIMAB-DYYB
     Dosage: 450 MG (7.5 MG, KG), EVERY 6 WEEKS
     Route: 042
     Dates: start: 20170817
  22. INFLECTRA [Suspect]
     Active Substance: INFLIXIMAB-DYYB
     Dosage: 500 MG, EVERY 6 WEEKS
     Route: 042
     Dates: start: 20190829
  23. INFLECTRA [Suspect]
     Active Substance: INFLIXIMAB-DYYB
     Dosage: 600 MG, EVERY 4  WEEKS
     Route: 042
     Dates: start: 20200120
  24. FERROUS GLUCONATE [Concomitant]
     Active Substance: FERROUS GLUCONATE
     Dosage: UNK
  25. INFLECTRA [Suspect]
     Active Substance: INFLIXIMAB-DYYB
     Indication: CROHN^S DISEASE
     Dosage: 300 MG (5 MG/KG), AT 2, 4, 6 WEEKS THEN EVERY 8 WEEKS
     Route: 042
     Dates: start: 20170408
  26. INFLECTRA [Suspect]
     Active Substance: INFLIXIMAB-DYYB
     Dosage: 300 MG (5 MG/KG), AT 2, 4, 6 WEEKS THEN EVERY 8 WEEKS
     Route: 042
     Dates: start: 20170630
  27. INFLECTRA [Suspect]
     Active Substance: INFLIXIMAB-DYYB
     Dosage: 450 MG (7.5 MG, KG), EVERY 6 WEEKS
     Route: 042
     Dates: start: 20171219
  28. INFLECTRA [Suspect]
     Active Substance: INFLIXIMAB-DYYB
     Dosage: 300 MG, EVERY 6 WEEKS
     Route: 042
     Dates: start: 20180504, end: 20180504
  29. INFLECTRA [Suspect]
     Active Substance: INFLIXIMAB-DYYB
     Dosage: 500 MG (10 MG/KG), EVERY 6 WEEKS
     Route: 042
     Dates: start: 20180920, end: 20190729
  30. INFLECTRA [Suspect]
     Active Substance: INFLIXIMAB-DYYB
     Dosage: 500 MG (10 MG/KG), EVERY 6 WEEKS
     Route: 042
     Dates: start: 20190603
  31. LORAZEPAM. [Concomitant]
     Active Substance: LORAZEPAM
     Dosage: UNK
     Route: 065
  32. METRONIDAZOLE. [Concomitant]
     Active Substance: METRONIDAZOLE
     Dosage: UNK
  33. VITAMIN B1 [Concomitant]
     Active Substance: THIAMINE HYDROCHLORIDE
     Dosage: UNK
  34. ACCUTANE [Concomitant]
     Active Substance: ISOTRETINOIN
     Dosage: UNK
  35. INFLECTRA [Suspect]
     Active Substance: INFLIXIMAB-DYYB
     Dosage: 500 MG, EVERY 4  WEEKS
     Route: 042
     Dates: start: 20190923, end: 20191022
  36. NORTRIPTYLINE [Concomitant]
     Active Substance: NORTRIPTYLINE
     Dosage: UNK
     Route: 065
  37. VITAMIN D [ERGOCALCIFEROL] [Concomitant]
     Active Substance: ERGOCALCIFEROL
     Dosage: UNK
  38. FRAGMIN [Concomitant]
     Active Substance: DALTEPARIN SODIUM
     Dosage: UNK
  39. INFLECTRA [Suspect]
     Active Substance: INFLIXIMAB-DYYB
     Dosage: 300, EVERY 8 WEEKS
     Route: 042
     Dates: start: 20170517, end: 20180209
  40. INFLECTRA [Suspect]
     Active Substance: INFLIXIMAB-DYYB
     Dosage: 300 MG, EVERY 8 WEEKS
     Route: 042
     Dates: start: 20180130
  41. INFLECTRA [Suspect]
     Active Substance: INFLIXIMAB-DYYB
     Dosage: 500 MG (10 MG/KG), EVERY 6 WEEKS
     Route: 042
     Dates: start: 20180920, end: 20190729
  42. INFLECTRA [Suspect]
     Active Substance: INFLIXIMAB-DYYB
     Dosage: 500 MG (10 MG/KG), EVERY 6 WEEKS
     Route: 042
     Dates: start: 20190408
  43. INFLECTRA [Suspect]
     Active Substance: INFLIXIMAB-DYYB
     Dosage: 600 MG, EVERY 4 WEEKS
     Route: 042
     Dates: start: 20200310
  44. PANTOPRAZOLE [Concomitant]
     Active Substance: PANTOPRAZOLE
     Dosage: UNK
     Route: 065
  45. CLOBETASOL [Concomitant]
     Active Substance: CLOBETASOL
     Dosage: UNK
  46. INFLECTRA [Suspect]
     Active Substance: INFLIXIMAB-DYYB
     Indication: COLITIS ULCERATIVE
     Dosage: 300 MG (5 MG/KG), AT 2, 4, 6 WEEKS THEN EVERY 8 WEEKS
     Route: 042
     Dates: start: 20170517, end: 20180209
  47. INFLECTRA [Suspect]
     Active Substance: INFLIXIMAB-DYYB
     Dosage: 450 MG (7.5 MG, KG), EVERY 6 WEEKS
     Route: 042
     Dates: start: 20171017
  48. INFLECTRA [Suspect]
     Active Substance: INFLIXIMAB-DYYB
     Dosage: 300 MG, EVERY 8 WEEKS
     Route: 042
     Dates: start: 20180209
  49. INFLECTRA [Suspect]
     Active Substance: INFLIXIMAB-DYYB
     Dosage: 500 MG (10 MG/KG), EVERY 6 WEEKS
     Route: 042
     Dates: start: 20181105
  50. INFLECTRA [Suspect]
     Active Substance: INFLIXIMAB-DYYB
     Dosage: 500 MG (10 MG/KG), EVERY 4 WEEKS
     Route: 042
     Dates: start: 20190729
  51. INFLECTRA [Suspect]
     Active Substance: INFLIXIMAB-DYYB
     Dosage: 600 MG, EVERY 4  WEEKS
     Route: 042
     Dates: start: 20191219
  52. ONDANSETRON [Concomitant]
     Active Substance: ONDANSETRON
     Dosage: UNK
     Route: 065
  53. LEVOTHYROXINE SODIUM. [Concomitant]
     Active Substance: LEVOTHYROXINE SODIUM
     Dosage: UNK
     Route: 065
  54. PROPRANOLOL HCL [Concomitant]
     Active Substance: PROPRANOLOL HYDROCHLORIDE
     Dosage: UNK
     Route: 065
  55. MUPIROCIN. [Concomitant]
     Active Substance: MUPIROCIN
     Dosage: UNK
  56. BETAMETHASONE VALERATE. [Concomitant]
     Active Substance: BETAMETHASONE VALERATE
     Dosage: UNK
  57. CENTRUM [Concomitant]
     Active Substance: VITAMINS
     Dosage: UNK
  58. ENSURE [Concomitant]
     Active Substance: AMINO ACIDS\DEXTROSE\ELECTROLYTES NOS\SOYBEAN OIL\VITAMINS
     Dosage: UNK
  59. INFLECTRA [Suspect]
     Active Substance: INFLIXIMAB-DYYB
     Dosage: 300 MG (5 MG/KG), AT 2, 4, 6 WEEKS THEN EVERY 8 WEEKS
     Route: 042
     Dates: start: 20170717
  60. INFLECTRA [Suspect]
     Active Substance: INFLIXIMAB-DYYB
     Dosage: 300 MG, EVERY 6 WEEKS
     Route: 042
     Dates: start: 20180323, end: 20180808
  61. INFLECTRA [Suspect]
     Active Substance: INFLIXIMAB-DYYB
     Dosage: 500 MG, EVERY 6 WEEKS
     Route: 042
     Dates: start: 20190823
  62. INFLECTRA [Suspect]
     Active Substance: INFLIXIMAB-DYYB
     Dosage: 500 MG, EVERY 6 WEEKS
     Route: 042
     Dates: start: 20190823
  63. INFLECTRA [Suspect]
     Active Substance: INFLIXIMAB-DYYB
     Dosage: 600 MG, EVERY 4  WEEKS
     Route: 042
     Dates: start: 20191119
  64. DIPHENOXYLATE HCL [Concomitant]
     Dosage: UNK
  65. MINOCYCLINE HCL [Concomitant]
     Active Substance: MINOCYCLINE HYDROCHLORIDE
     Dosage: UNK

REACTIONS (48)
  - Condition aggravated [Not Recovered/Not Resolved]
  - Therapeutic product effect incomplete [Unknown]
  - Ear infection [Recovered/Resolved]
  - Poor venous access [Unknown]
  - Fluid intake reduced [Unknown]
  - Vascular access complication [Recovered/Resolved]
  - Diplopia [Not Recovered/Not Resolved]
  - Product use issue [Unknown]
  - Vomiting [Not Recovered/Not Resolved]
  - Emotional disorder [Unknown]
  - Dyspnoea [Recovered/Resolved]
  - Pyoderma gangrenosum [Unknown]
  - Anaemia [Unknown]
  - Abdominal distension [Unknown]
  - Arthralgia [Unknown]
  - Glaucoma [Unknown]
  - Painful respiration [Unknown]
  - Anal fissure [Not Recovered/Not Resolved]
  - Fatigue [Not Recovered/Not Resolved]
  - Eye infection [Recovered/Resolved]
  - Productive cough [Unknown]
  - Mouth haemorrhage [Unknown]
  - Chest pain [Recovered/Resolved]
  - Abdominal discomfort [Unknown]
  - Vision blurred [Not Recovered/Not Resolved]
  - Sleep disorder [Unknown]
  - Vulvovaginal mycotic infection [Unknown]
  - Menopause [Unknown]
  - Blood pressure fluctuation [Unknown]
  - Pleurisy [Not Recovered/Not Resolved]
  - Muscle spasms [Recovered/Resolved]
  - Fall [Unknown]
  - Pain [Unknown]
  - Respiratory tract congestion [Unknown]
  - Cystitis [Unknown]
  - Oropharyngeal pain [Recovered/Resolved]
  - Ear infection [Unknown]
  - Off label use [Unknown]
  - Malaise [Not Recovered/Not Resolved]
  - Nausea [Not Recovered/Not Resolved]
  - Movement disorder [Unknown]
  - Vomiting [Unknown]
  - Conjunctivitis [Unknown]
  - Migraine [Unknown]
  - Pneumonia [Recovered/Resolved]
  - Rib fracture [Unknown]
  - Pyrexia [Not Recovered/Not Resolved]
  - Epistaxis [Not Recovered/Not Resolved]

NARRATIVE: CASE EVENT DATE: 20170817
